FAERS Safety Report 19002329 (Version 1)
Quarter: 2021Q1

REPORT INFORMATION
  Report Type: Spontaneous
  Country: DE (occurrence: DE)
  Receive Date: 20210312
  Receipt Date: 20210312
  Transmission Date: 20210420
  Serious: Yes (Other)
  Sender: FDA-Public Use
  Company Number: DE-COLLEGIUM PHARMACEUTICAL, INC.-2021CGM00120

PATIENT
  Age: 71 Year
  Sex: Female

DRUGS (6)
  1. PREGABALIN BETA [Concomitant]
     Active Substance: PREGABALIN
     Dosage: UNK
     Dates: start: 2018
  2. QUTENZA CUTANEOUS PATCH [Concomitant]
     Dosage: UNK
     Dates: start: 2018
  3. PREGABALIN BETA [Concomitant]
     Active Substance: PREGABALIN
     Dosage: UNK
     Dates: start: 2016
  4. NUCYNTA [Suspect]
     Active Substance: TAPENTADOL HYDROCHLORIDE
     Indication: PRODUCT USED FOR UNKNOWN INDICATION
     Dosage: UNK
     Route: 048
     Dates: start: 20200409
  5. PALEXIA RETARD PROLONGED?RELEASE TABLET [Concomitant]
     Dosage: UNK
     Dates: start: 2019
  6. NUCYNTA [Suspect]
     Active Substance: TAPENTADOL HYDROCHLORIDE
     Dosage: UNK
     Route: 048

REACTIONS (2)
  - Suspected transmission of an infectious agent via product [Unknown]
  - Urinary tract infection [Recovered/Resolved]

NARRATIVE: CASE EVENT DATE: 20210129
